FAERS Safety Report 6811139-5 (Version None)
Quarter: 2010Q2

REPORT INFORMATION
  Report Type: 
  Country: None (occurrence: None)
  Receive Date: 20100630
  Receipt Date: 20091026
  Transmission Date: 20101027
  Serious: No
  Sender: FDA-Public Use
  Company Number: US-PFIZER INC-2008088938

PATIENT
  Sex: Female
  Weight: 75 kg

DRUGS (9)
  1. ESTRING [Suspect]
     Indication: ATROPHIC VULVOVAGINITIS
     Dosage: UNK
     Dates: start: 20080827
  2. ESTRING [Suspect]
     Indication: VULVOVAGINAL DRYNESS
  3. MULTI-VITAMINS [Concomitant]
  4. LYSINE [Concomitant]
     Indication: GENITAL HERPES
  5. CALCIUM CARBONATE [Concomitant]
  6. ACETYLSALICYLIC ACID [Concomitant]
  7. UBIDECARENONE [Concomitant]
  8. MELOXICAM [Concomitant]
     Indication: ARTHRITIS
  9. SYNTHROID [Concomitant]
     Indication: THYROID NEOPLASM

REACTIONS (4)
  - ADNEXA UTERI PAIN [None]
  - ARTHRITIS [None]
  - HYPERTONIC BLADDER [None]
  - RASH PRURITIC [None]
